FAERS Safety Report 11559256 (Version 1)
Quarter: 2015Q3

REPORT INFORMATION
  Report Type: Spontaneous
  Country: US (occurrence: None)
  Receive Date: 20150925
  Receipt Date: 20150925
  Transmission Date: 20151125
  Serious: No
  Sender: FDA-Public Use
  Company Number: None

PATIENT
  Sex: Female

DRUGS (1)
  1. TOBRAMYCIN AND DEXAMETHASONE [Suspect]
     Active Substance: DEXAMETHASONE\TOBRAMYCIN
     Dosage: 0.3%/0.1% GTT
     Route: 047
     Dates: start: 20150702

REACTIONS (5)
  - Product substitution issue [None]
  - Instillation site swelling [None]
  - Instillation site irritation [None]
  - Product quality issue [None]
  - Instillation site erythema [None]
